FAERS Safety Report 23879033 (Version 2)
Quarter: 2024Q3

REPORT INFORMATION
  Report Type: Report from Study
  Country: US (occurrence: US)
  Receive Date: 20240521
  Receipt Date: 20240717
  Transmission Date: 20241016
  Serious: Yes (Hospitalization)
  Sender: EISAI
  Company Number: US-Eisai-EC-2024-166035

PATIENT
  Age: 63 Year
  Sex: Female

DRUGS (11)
  1. LENVIMA [Suspect]
     Active Substance: LENVATINIB
     Indication: Endometrial cancer
     Route: 048
     Dates: start: 20230501, end: 2023
  2. LENVIMA [Suspect]
     Active Substance: LENVATINIB
     Dosage: HELD FOR A WEEK
     Route: 048
     Dates: start: 20230729, end: 202404
  3. LENVIMA [Suspect]
     Active Substance: LENVATINIB
     Dosage: HELD FOR UPCOMING PROCEDURE
     Route: 048
     Dates: start: 202404, end: 2024
  4. KEYTRUDA [Concomitant]
     Active Substance: PEMBROLIZUMAB
     Indication: Endometrial cancer
     Dosage: DOSE AND FREQUENCY UNKNOWN
     Route: 041
  5. CALCIUM-VIT D3 [Concomitant]
  6. DULOXETINE [Concomitant]
     Active Substance: DULOXETINE
  7. KEYTRUDA [Concomitant]
     Active Substance: PEMBROLIZUMAB
  8. CALCIUM CHLORIDE\MAGNESIUM CHLORIDE [Concomitant]
     Active Substance: CALCIUM CHLORIDE\MAGNESIUM CHLORIDE
  9. PANTOPRAZOLE [Concomitant]
     Active Substance: PANTOPRAZOLE
  10. SYNTHROID [Concomitant]
     Active Substance: LEVOTHYROXINE SODIUM
  11. VITAMIN B6 [Concomitant]
     Active Substance: PYRIDOXINE HYDROCHLORIDE

REACTIONS (3)
  - Fistula [Not Recovered/Not Resolved]
  - Bladder neoplasm [Not Recovered/Not Resolved]
  - Blood thyroid stimulating hormone abnormal [Not Recovered/Not Resolved]

NARRATIVE: CASE EVENT DATE: 20240101
